FAERS Safety Report 8953038 (Version 2)
Quarter: 2013Q2

REPORT INFORMATION
  Report Type: Spontaneous
  Country: US (occurrence: US)
  Receive Date: 20121205
  Receipt Date: 20130416
  Transmission Date: 20140414
  Serious: No
  Sender: FDA-Public Use
  Company Number: US-009507513-1211USA010938

PATIENT
  Sex: Female

DRUGS (3)
  1. FOSAMAX [Suspect]
     Indication: OSTEOPENIA
     Dosage: UNK UNK, QD
     Route: 048
     Dates: start: 2007
  2. FOSAMAX [Suspect]
     Dosage: UNK UNK, QW
     Route: 048
  3. BUDESONIDE [Concomitant]
     Indication: COLITIS

REACTIONS (1)
  - Pain in extremity [Recovered/Resolved]
